FAERS Safety Report 20693874 (Version 3)
Quarter: 2022Q2

REPORT INFORMATION
  Report Type: Report from Study
  Country: US (occurrence: US)
  Receive Date: 20220411
  Receipt Date: 20220617
  Transmission Date: 20220721
  Serious: Yes (Other)
  Sender: FDA-Public Use
  Company Number: US-NOVARTISPH-NVSC2022US078268

PATIENT
  Sex: Female

DRUGS (2)
  1. COSENTYX [Suspect]
     Active Substance: SECUKINUMAB
     Indication: Ankylosing spondylitis
     Dosage: 150 MG, QMO
     Route: 058
  2. COSENTYX [Suspect]
     Active Substance: SECUKINUMAB
     Dosage: 150 MG, Q2W (ONCE EVERY TWO WEEKS)
     Route: 058

REACTIONS (9)
  - Pneumonia [Unknown]
  - Condition aggravated [Unknown]
  - Ear infection [Unknown]
  - Nasal congestion [Unknown]
  - Conjunctivitis [Unknown]
  - Cough [Unknown]
  - Asthenia [Unknown]
  - Product use issue [Unknown]
  - Drug ineffective [Unknown]
